FAERS Safety Report 6507589-7 (Version None)
Quarter: 2009Q4

REPORT INFORMATION
  Report Type: 
  Country: None (occurrence: None)
  Receive Date: 20091221
  Receipt Date: 20090310
  Transmission Date: 20100525
  Serious: No
  Sender: FDA-Public Use
  Company Number: US-BRISTOL-MYERS SQUIBB COMPANY-14537690

PATIENT
  Age: 68 Year
  Sex: Female
  Weight: 59 kg

DRUGS (6)
  1. PRAVACHOL [Suspect]
     Dosage: STARTED 1YR AGO WITH 40MG, INCREASED TO 80MG.
  2. LOVENOX [Concomitant]
     Dosage: 18 SHOTS
  3. COUMADIN [Concomitant]
     Dosage: SOMETIMES 5MG.
  4. COREG [Concomitant]
  5. PREMARIN [Concomitant]
     Dosage: TAKING FOR 25YRS.
     Dates: end: 20090109
  6. BENICAR [Concomitant]

REACTIONS (2)
  - PLANTAR FASCIITIS [None]
  - THROMBOSIS [None]
